FAERS Safety Report 7408387-2 (Version None)
Quarter: 2011Q2

REPORT INFORMATION
  Report Type: 
  Country: None (occurrence: None)
  Receive Date: 20110412
  Receipt Date: 20110407
  Transmission Date: 20111010
  Serious: Yes (Death, Hospitalization)
  Sender: FDA-Public Use
  Company Number: CN-GENZYME-FLUD-1000378

PATIENT
  Sex: Female
  Weight: 60.5 kg

DRUGS (17)
  1. ARA-C [Suspect]
     Indication: ACUTE MYELOID LEUKAEMIA
     Dosage: 2 G/M2, QD
     Route: 065
     Dates: start: 20100903, end: 20100908
  2. LONGZERUI [Concomitant]
     Indication: PRODUCT USED FOR UNKNOWN INDICATION
     Dosage: UNK
     Route: 065
  3. VANCOMYCIN HCL [Concomitant]
     Indication: SEPSIS
     Dosage: UNK
     Route: 065
  4. NEUPOGEN [Suspect]
     Indication: ACUTE MYELOID LEUKAEMIA
     Dosage: 200 MCG/M2, QD
     Route: 065
     Dates: start: 20100903, end: 20100908
  5. BANGTING [Concomitant]
     Indication: PRODUCT USED FOR UNKNOWN INDICATION
     Dosage: UNK
     Route: 065
  6. AVELOX [Concomitant]
     Indication: SEPSIS
     Dosage: UNK
     Route: 065
  7. TINIDAZOLE [Concomitant]
     Indication: SEPSIS
     Dosage: UNK
     Route: 065
  8. SHIOMARIN [Concomitant]
     Indication: SEPSIS
     Dosage: UNK
     Route: 065
  9. TINIDAZOLE [Concomitant]
     Indication: PNEUMONIA
  10. SHIOMARIN [Concomitant]
     Indication: PNEUMONIA
  11. AVELOX [Concomitant]
     Indication: PNEUMONIA
  12. FLUDARA [Suspect]
     Indication: ACUTE MYELOID LEUKAEMIA
     Dosage: 30 MG/M2, QD
     Route: 042
     Dates: start: 20100903, end: 20100908
  13. MEPEM [Concomitant]
     Indication: PNEUMONIA
  14. ZUOYITING [Concomitant]
     Indication: PRODUCT USED FOR UNKNOWN INDICATION
     Dosage: UNK
     Route: 065
  15. ALLOPURINOL [Concomitant]
     Indication: PRODUCT USED FOR UNKNOWN INDICATION
     Dosage: UNK
     Route: 065
  16. MEPEM [Concomitant]
     Indication: SEPSIS
     Dosage: UNK
     Route: 065
  17. VANCOMYCIN HCL [Concomitant]
     Indication: PNEUMONIA

REACTIONS (2)
  - PNEUMONIA [None]
  - SEPSIS [None]
